FAERS Safety Report 21096490 (Version 3)
Quarter: 2022Q3

REPORT INFORMATION
  Report Type: Spontaneous
  Country: ES (occurrence: ES)
  Receive Date: 20220718
  Receipt Date: 20220813
  Transmission Date: 20221027
  Serious: Yes (Other)
  Sender: FDA-Public Use
  Company Number: ES-ALXN-A202208310

PATIENT
  Sex: Female
  Weight: 46 kg

DRUGS (7)
  1. SOLIRIS [Suspect]
     Active Substance: ECULIZUMAB
     Dosage: 1200 MG, EVERY 15 DAYS
     Route: 042
  2. SOLIRIS [Suspect]
     Active Substance: ECULIZUMAB
     Indication: Paroxysmal nocturnal haemoglobinuria
     Dosage: 600 MG, QW
     Route: 065
     Dates: start: 20110629
  3. SOLIRIS [Suspect]
     Active Substance: ECULIZUMAB
     Dosage: 900 MG, EVERY 15 DAYS
     Route: 042
     Dates: start: 20110728
  4. BISOPROLOL [Concomitant]
     Active Substance: BISOPROLOL
     Indication: Atrial fibrillation
     Dosage: 5 MG, QD (1-0-0)
     Route: 065
  5. CROMATONBIC B12 [Concomitant]
     Indication: Product used for unknown indication
     Dosage: 1000 ?G, UNK
     Route: 058
  6. EXJADE [Concomitant]
     Active Substance: DEFERASIROX
     Indication: Anticoagulant therapy
     Dosage: 380 UNK, UNK
     Route: 065
  7. EPOETIN BETA [Concomitant]
     Active Substance: ERYTHROPOIETIN
     Indication: Product used for unknown indication
     Dosage: 30000 IU, QW
     Route: 058

REACTIONS (11)
  - Extravascular haemolysis [Not Recovered/Not Resolved]
  - Haemolytic anaemia [Unknown]
  - Oesophageal stenosis [Unknown]
  - Bacterial pyelonephritis [Unknown]
  - Atrial fibrillation [Unknown]
  - Hyperbilirubinaemia [Unknown]
  - Hyperferritinaemia [Unknown]
  - Therapeutic response decreased [Unknown]
  - Hypertransaminasaemia [Recovered/Resolved]
  - Staphylococcal infection [Recovered/Resolved]
  - Off label use [Unknown]

NARRATIVE: CASE EVENT DATE: 20110701
